FAERS Safety Report 8308996-2 (Version None)
Quarter: 2012Q2

REPORT INFORMATION
  Report Type: 
  Country: None (occurrence: None)
  Receive Date: 20120424
  Receipt Date: 20120419
  Transmission Date: 20120825
  Serious: Yes (Other)
  Sender: FDA-Public Use
  Company Number: US-PFIZER INC-2012066741

PATIENT
  Sex: Male
  Weight: 99.773 kg

DRUGS (13)
  1. SPIRONOLACTONE [Concomitant]
     Dosage: 50 MG, UNK
  2. AMIODARONE [Concomitant]
     Dosage: 200 MG, UNK
  3. WELCHOL [Concomitant]
     Dosage: 50 MG, 2X/DAY
  4. FOLTX [Concomitant]
     Dosage: 2 MG, UNK
  5. COREG [Concomitant]
     Dosage: 25 MG, 2X/DAY
  6. NITROGLYCERIN [Concomitant]
     Dosage: UNK, AS NEEDED
  7. HYZAAR [Concomitant]
     Dosage: [LOSARTAN 50]/[HYDROCHLOROTHIAZIDE 12.5 MG], 1X/DAY
  8. LIPITOR [Suspect]
     Indication: BLOOD CHOLESTEROL INCREASED
     Dosage: 40 MG, 1X/DAY
     Route: 048
     Dates: start: 20091001
  9. PLAVIX [Concomitant]
     Dosage: 75 MG, UNK
  10. LEVOTHROID [Concomitant]
     Dosage: 137 UG, UNK
  11. TRICOR [Concomitant]
     Dosage: 145 MG, UNK
  12. ACETYLSALICYLIC ACID [Concomitant]
     Dosage: 325 MG, UNK
  13. NEXIUM [Concomitant]
     Dosage: 40 MG, UNK

REACTIONS (1)
  - TYPE 2 DIABETES MELLITUS [None]
